FAERS Safety Report 5527268-2 (Version None)
Quarter: 2007Q4

REPORT INFORMATION
  Report Type: 
  Country: None (occurrence: None)
  Receive Date: 20071128
  Receipt Date: 20071121
  Transmission Date: 20080405
  Serious: Yes (Disabling, Other)
  Sender: FDA-Public Use
  Company Number: A0695606A

PATIENT
  Age: 6 Year
  Sex: Female

DRUGS (2)
  1. LAMICTAL [Suspect]
     Indication: EPILEPSY
     Route: 048
     Dates: start: 20070801
  2. NO CONCURRENT MEDICATION [Concomitant]

REACTIONS (4)
  - ABNORMAL BEHAVIOUR [None]
  - ENERGY INCREASED [None]
  - INAPPROPRIATE AFFECT [None]
  - PERSONALITY CHANGE [None]
